FAERS Safety Report 10731328 (Version 12)
Quarter: 2015Q4

REPORT INFORMATION
  Report Type: Spontaneous
  Country: US (occurrence: US)
  Receive Date: 20150122
  Receipt Date: 20151013
  Transmission Date: 20160304
  Serious: Yes (Hospitalization, Other)
  Sender: FDA-Public Use
  Company Number: US-GLAXOSMITHKLINE-US2015GSK005855

PATIENT
  Sex: Female

DRUGS (9)
  1. FLOLAN [Suspect]
     Active Substance: EPOPROSTENOL SODIUM
     Indication: PULMONARY HYPERTENSION
     Dosage: UNK,CO
     Route: 042
     Dates: start: 20150106
  2. ADCIRCA [Concomitant]
     Active Substance: TADALAFIL
     Indication: PRODUCT USED FOR UNKNOWN INDICATION
  3. FLOLAN [Suspect]
     Active Substance: EPOPROSTENOL SODIUM
     Dosage: 1 NG/KG/MIN CONTINUOUS; CONCENTRATION: 2,000 NG/ML; PUMP RATE: 71 ML/DAY; VIAL STRENGTH: 0.5 MG
     Dates: start: 20150106
  4. FLOLAN [Suspect]
     Active Substance: EPOPROSTENOL SODIUM
     Dosage: 4NG/KG/MIN
     Dates: start: 20150114
  5. FLOLAN [Suspect]
     Active Substance: EPOPROSTENOL SODIUM
     Dosage: 3 NG/KG/MIN (CONCENTRATION 5,000 NG/ML, PUMP RATE 86 ML/DAY, VIAL STRENGTH 0.5 MG), CO
     Route: 042
  6. FLOLAN [Suspect]
     Active Substance: EPOPROSTENOL SODIUM
     Dosage: 4 NG/KG/MIN (CONCENTRATION 10,000 NG/ML, PUMP RATE 57 ML/DAY, VIAL STRENGTH 0.5 MG), CO
     Route: 042
  7. FLOLAN [Suspect]
     Active Substance: EPOPROSTENOL SODIUM
     Dosage: 1 NG/KG/MIN (CONCENTRATION 2000 NG/ML, PUMP RATE 71 ML/DAY, VIAL STRENGTH 0.5 MG), CO
     Route: 042
  8. FLOLAN [Suspect]
     Active Substance: EPOPROSTENOL SODIUM
     Dosage: 1 NG/KG/MIN CONTINUOUS; CONCENTRATION: 2,000 NG/ML; PUMP RATE: 71 ML/DAY; VIAL STRENGTH: 0.5 MG
     Dates: start: 20150115
  9. FLOLAN [Suspect]
     Active Substance: EPOPROSTENOL SODIUM
     Dosage: 5 NG/KG/MIN CONTINUOUSLY
     Route: 042

REACTIONS (11)
  - Catheter site erythema [Not Recovered/Not Resolved]
  - Central venous catheterisation [Unknown]
  - Liver transplant [Unknown]
  - Catheter site discharge [Unknown]
  - Hospitalisation [Not Recovered/Not Resolved]
  - Infection [Unknown]
  - Device related infection [Unknown]
  - Fluid retention [Unknown]
  - Pyrexia [Unknown]
  - Gastrointestinal disorder [Unknown]
  - Headache [Unknown]
